FAERS Safety Report 9604491 (Version 1)
Quarter: 2013Q4

REPORT INFORMATION
  Report Type: Spontaneous
  Country: NL (occurrence: NL)
  Receive Date: 20131008
  Receipt Date: 20131008
  Transmission Date: 20140711
  Serious: Yes (Hospitalization)
  Sender: FDA-Public Use
  Company Number: NL-PFIZER INC-2013287208

PATIENT
  Age: 61 Year
  Sex: Female

DRUGS (2)
  1. GEMFIBROZIL [Suspect]
     Indication: HYPERCHOLESTEROLAEMIA
     Dosage: 600 MG, 2X/DAY
     Dates: start: 20130718, end: 20130822
  2. MICARDIS [Concomitant]
     Dosage: UNK, 1X/DAY
     Dates: start: 20080514

REACTIONS (2)
  - Urinary retention [Not Recovered/Not Resolved]
  - Neuropathy peripheral [Not Recovered/Not Resolved]
